FAERS Safety Report 7926284-0 (Version None)
Quarter: 2011Q4

REPORT INFORMATION
  Report Type: 
  Country: None (occurrence: None)
  Receive Date: 20111118
  Receipt Date: 20111111
  Transmission Date: 20120403
  Serious: Yes (Hospitalization)
  Sender: FDA-Public Use
  Company Number: US-BIOGENIDEC-2011BI043102

PATIENT
  Age: 31 Year
  Sex: Female

DRUGS (1)
  1. AVONEX [Suspect]
     Indication: MULTIPLE SCLEROSIS
     Route: 030
     Dates: start: 20110130

REACTIONS (6)
  - DIZZINESS [None]
  - BACK PAIN [None]
  - NAUSEA [None]
  - FAECAL INCONTINENCE [None]
  - NECK PAIN [None]
  - FREQUENT BOWEL MOVEMENTS [None]
